FAERS Safety Report 24126980 (Version 1)
Quarter: 2024Q3

REPORT INFORMATION
  Report Type: Report from Study
  Country: US (occurrence: US)
  Receive Date: 20240723
  Receipt Date: 20240723
  Transmission Date: 20241016
  Serious: No
  Sender: VANDA PHARMACEUTICALS
  Company Number: US-VANDA PHARMACEUTICALS, INC-2024TASUS007256

PATIENT
  Sex: Male
  Weight: 90.703 kg

DRUGS (8)
  1. HETLIOZ [Suspect]
     Active Substance: TASIMELTEON
     Indication: Non-24-hour sleep-wake disorder
     Dosage: 20 MILLIGRAM, QHS
     Route: 048
  2. HETLIOZ [Suspect]
     Active Substance: TASIMELTEON
     Dosage: 20 MILLIGRAM, QHS
     Route: 048
  3. LORAZEPAM [Concomitant]
     Active Substance: LORAZEPAM
     Indication: Product used for unknown indication
  4. OXYCONTIN [Concomitant]
     Active Substance: OXYCODONE HYDROCHLORIDE
     Indication: Product used for unknown indication
  5. SODIUM OXYBATE [Concomitant]
     Active Substance: SODIUM OXYBATE
     Indication: Product used for unknown indication
  6. JARDIANCE [Concomitant]
     Active Substance: EMPAGLIFLOZIN
     Indication: Product used for unknown indication
  7. BYSTOLIC [Concomitant]
     Active Substance: NEBIVOLOL HYDROCHLORIDE
     Indication: Product used for unknown indication
  8. INSULIN GLARGINE-YFGN [Concomitant]
     Active Substance: INSULIN GLARGINE-YFGN
     Indication: Product used for unknown indication

REACTIONS (3)
  - Herpes zoster [Unknown]
  - Inappropriate schedule of product administration [Unknown]
  - Expired product administered [Unknown]
